FAERS Safety Report 20898384 (Version 1)
Quarter: 2022Q2

REPORT INFORMATION
  Report Type: Spontaneous
  Country: US (occurrence: US)
  Receive Date: 20220601
  Receipt Date: 20220601
  Transmission Date: 20220721
  Serious: Yes (Other)
  Sender: FDA-Public Use
  Company Number: US-CELLTRION INC.-2022US007810

PATIENT

DRUGS (3)
  1. TRUXIMA [Suspect]
     Active Substance: RITUXIMAB-ABBS
     Indication: Autoimmune haemolytic anaemia
     Dosage: 830 MG, ONE CYCLE OF 28 DAYS (WEEKLY X 4)
     Dates: start: 20220318
  2. TRUXIMA [Suspect]
     Active Substance: RITUXIMAB-ABBS
     Indication: Evans syndrome
     Dosage: 800 MG, ONE CYCLE OF 28 DAYS (WEEKLY X 4)
     Dates: start: 20220325
  3. TRUXIMA [Suspect]
     Active Substance: RITUXIMAB-ABBS
     Dosage: 800 MG, ONE CYCLE OF 28 DAYS (WEEKLY X 4)
     Dates: start: 20220401

REACTIONS (3)
  - Evans syndrome [Unknown]
  - Autoimmune haemolytic anaemia [Unknown]
  - Off label use [Unknown]
